FAERS Safety Report 9449111 (Version 1)
Quarter: 2013Q3

REPORT INFORMATION
  Report Type: Spontaneous
  Country: GB (occurrence: GB)
  Receive Date: 20130808
  Receipt Date: 20130808
  Transmission Date: 20140515
  Serious: Yes (Congenital Anomaly)
  Sender: FDA-Public Use
  Company Number: GB-MYLANLABS-2013S1016735

PATIENT
  Sex: Female
  Weight: 2.65 kg

DRUGS (2)
  1. QUETIAPINE [Suspect]
     Route: 064
  2. DIAZEPAM [Concomitant]
     Route: 064

REACTIONS (3)
  - Congenital hand malformation [Unknown]
  - Arthropathy [Unknown]
  - Exposure during pregnancy [Unknown]
